FAERS Safety Report 18501525 (Version 3)
Quarter: 2021Q2

REPORT INFORMATION
  Report Type: Spontaneous
  Country: AU (occurrence: AU)
  Receive Date: 20201113
  Receipt Date: 20210416
  Transmission Date: 20210717
  Serious: No
  Sender: FDA-Public Use
  Company Number: AU-PFIZER INC-2020439430

PATIENT
  Sex: Female

DRUGS (1)
  1. SYNAREL [Suspect]
     Active Substance: NAFARELIN ACETATE
     Indication: ENDOMETRIOSIS
     Dosage: UNK
     Dates: start: 202008

REACTIONS (6)
  - Hot flush [Recovered/Resolved]
  - Migraine [Recovered/Resolved]
  - Drug dose omission by device [Not Recovered/Not Resolved]
  - Poor quality device used [Unknown]
  - Device failure [Unknown]
  - Headache [Not Recovered/Not Resolved]

NARRATIVE: CASE EVENT DATE: 2020
